FAERS Safety Report 20791940 (Version 1)
Quarter: 2022Q2

REPORT INFORMATION
  Report Type: Spontaneous
  Country: US (occurrence: US)
  Receive Date: 20220505
  Receipt Date: 20220505
  Transmission Date: 20220721
  Serious: No
  Sender: FDA-Public Use
  Company Number: US-PFIZER INC-202101289538

PATIENT
  Age: 73 Year
  Sex: Female

DRUGS (1)
  1. XELJANZ [Suspect]
     Active Substance: TOFACITINIB CITRATE
     Indication: Rheumatoid arthritis
     Dosage: 5 MG, 2X/DAY
     Route: 048
     Dates: start: 20210810

REACTIONS (9)
  - Drug ineffective [Unknown]
  - Product dose omission issue [Unknown]
  - Discouragement [Unknown]
  - Dysuria [Recovered/Resolved]
  - Polyuria [Unknown]
  - Tongue disorder [Recovered/Resolved]
  - Pain in extremity [Unknown]
  - Pain [Unknown]
  - Swelling [Unknown]
